FAERS Safety Report 4465478-6 (Version None)
Quarter: 2004Q3

REPORT INFORMATION
  Report Type: 
  Country: None (occurrence: None)
  Receive Date: 20040930
  Receipt Date: 20040914
  Transmission Date: 20050211
  Serious: Yes (Hospitalization)
  Sender: FDA-Public Use
  Company Number: ENT-2004-0174

PATIENT
  Age: 76 Year
  Sex: Male

DRUGS (12)
  1. COMTAN [Suspect]
     Dosage: 3 DF ORAL
     Route: 048
  2. MADOPAR [Suspect]
     Dosage: ORAL
     Route: 048
     Dates: end: 20040801
  3. HEXAQUINE [Suspect]
     Dosage: ORAL
     Route: 048
     Dates: end: 20040810
  4. DOPERGIN [Suspect]
     Dosage: 2 MG ORAL
     Route: 048
     Dates: end: 20040801
  5. MOPRAL [Suspect]
     Dosage: 20 MG ORAL
     Route: 048
  6. KARDEGIC [Suspect]
     Dosage: 160 MG ORAL
     Route: 048
     Dates: end: 20040801
  7. CREON [Suspect]
  8. ATROVENT [Suspect]
  9. SERETIDE   GLAXO WELLCOME  (SALMETEROL XINAFOATE) [Suspect]
  10. VENTOLIN [Suspect]
  11. SOLUPRED [Suspect]
  12. LEXOMIL [Suspect]

REACTIONS (3)
  - BLOOD THYROID STIMULATING HORMONE INCREASED [None]
  - ERYTHEMA [None]
  - HAEMATOMA [None]
